FAERS Safety Report 9433575 (Version 1)
Quarter: 2013Q3

REPORT INFORMATION
  Report Type: Spontaneous
  Country: DE (occurrence: DE)
  Receive Date: 20130731
  Receipt Date: 20130731
  Transmission Date: 20140515
  Serious: Yes (Hospitalization)
  Sender: FDA-Public Use
  Company Number: DE-WATSON-2013-13384

PATIENT
  Age: 34 Year
  Sex: Female

DRUGS (4)
  1. METFORMIN HYDROCHLORIDE (UNKNOWN) [Suspect]
     Indication: SUICIDE ATTEMPT
     Dosage: UNK, UNKNOWN
     Route: 065
  2. SEROQUEL [Concomitant]
     Indication: DELUSIONAL DISORDER, UNSPECIFIED TYPE
     Dosage: 200 MG, UNKNOWN
     Route: 065
  3. RISPERDAL CONSTA [Concomitant]
     Indication: DELUSIONAL DISORDER, UNSPECIFIED TYPE
     Dosage: 25 MG, UNKNOWN
     Route: 065
  4. AKINETON                           /00079501/ [Concomitant]
     Indication: DELUSIONAL DISORDER, UNSPECIFIED TYPE
     Dosage: 4 MG, UNKNOWN
     Route: 065

REACTIONS (2)
  - Lactic acidosis [Unknown]
  - Intentional overdose [Unknown]
